FAERS Safety Report 5138296-3 (Version None)
Quarter: 2006Q4

REPORT INFORMATION
  Report Type: 
  Country: None (occurrence: None)
  Receive Date: 20061030
  Receipt Date: 20060815
  Transmission Date: 20070319
  Serious: Yes (Other)
  Sender: FDA-Public Use
  Company Number: US-GLAXOSMITHKLINE-A0616767A

PATIENT
  Sex: Male

DRUGS (6)
  1. ADVAIR HFA [Suspect]
     Indication: ASTHMA
     Dosage: 1PUFF TWICE PER DAY
     Route: 055
     Dates: start: 20050701
  2. ALCOHOL [Suspect]
     Route: 048
  3. ALBUTEROL [Concomitant]
  4. SINGULAIR [Concomitant]
  5. ASTELIN [Concomitant]
  6. HYDROCHLOROTHIAZIDE [Concomitant]

REACTIONS (4)
  - ASTHENIA [None]
  - ASTHMA [None]
  - CHEST DISCOMFORT [None]
  - MALAISE [None]
